FAERS Safety Report 12774915 (Version 1)
Quarter: 2016Q3

REPORT INFORMATION
  Report Type: Spontaneous
  Country: US (occurrence: US)
  Receive Date: 20160923
  Receipt Date: 20160923
  Transmission Date: 20161109
  Serious: No
  Sender: FDA-Public Use
  Company Number: US-JNJFOC-20160912345

PATIENT
  Age: 41 Year
  Sex: Female
  Weight: 67.13 kg

DRUGS (3)
  1. ZYRTEC ALLERGY [Suspect]
     Active Substance: CETIRIZINE HYDROCHLORIDE
     Indication: MULTIPLE ALLERGIES
     Dosage: DID TRY 2 TABS ON ONE OF THE DAYS
     Route: 048
     Dates: start: 20160905, end: 20160911
  2. ZYRTEC ALLERGY [Suspect]
     Active Substance: CETIRIZINE HYDROCHLORIDE
     Indication: PRURITUS GENERALISED
     Dosage: DID TRY 2 TABS ON ONE OF THE DAYS
     Route: 048
     Dates: start: 20160905, end: 20160911
  3. ZYRTEC ALLERGY [Suspect]
     Active Substance: CETIRIZINE HYDROCHLORIDE
     Indication: PRURITUS
     Dosage: DID TRY 2 TABS ON ONE OF THE DAYS
     Route: 048
     Dates: start: 20160905, end: 20160911

REACTIONS (3)
  - Incorrect dose administered [Unknown]
  - Drug ineffective [Unknown]
  - Drug ineffective for unapproved indication [Unknown]
